FAERS Safety Report 18493385 (Version 1)
Quarter: 2020Q4

REPORT INFORMATION
  Report Type: Spontaneous
  Country: US (occurrence: US)
  Receive Date: 20201111
  Receipt Date: 20201111
  Transmission Date: 20210114
  Serious: Yes (Other)
  Sender: FDA-Public Use
  Company Number: US-PURDUE-USA-2020-0175505

PATIENT
  Sex: Male

DRUGS (3)
  1. MSIR [Suspect]
     Active Substance: MORPHINE SULFATE
     Indication: PAIN
     Dosage: UNK
     Route: 065
  2. MORPHINE SULFATE (SIMILAR TO NDA 19-516) [Suspect]
     Active Substance: MORPHINE SULFATE
     Indication: PRODUCT USED FOR UNKNOWN INDICATION
     Dosage: UNK
     Route: 048
  3. MS CONTIN [Suspect]
     Active Substance: MORPHINE SULFATE
     Indication: PAIN
     Dosage: UNK
     Route: 048

REACTIONS (7)
  - Neck pain [Unknown]
  - Decreased appetite [Unknown]
  - Mania [Unknown]
  - Drug dependence [Unknown]
  - Hand amputation [Unknown]
  - Back pain [Unknown]
  - Amnesia [Unknown]
